FAERS Safety Report 5629912-8 (Version None)
Quarter: 2008Q1

REPORT INFORMATION
  Report Type: 
  Country: None (occurrence: None)
  Receive Date: 20080218
  Receipt Date: 20080207
  Transmission Date: 20080703
  Serious: Yes (Other)
  Sender: FDA-Public Use
  Company Number: PHRM2007FR02124

PATIENT
  Age: 6 Year
  Sex: Female
  Weight: 21 kg

DRUGS (1)
  1. EXJADE [Suspect]
     Indication: THALASSAEMIA BETA
     Dosage: 500 MG/DAY
     Route: 048
     Dates: start: 20070301, end: 20070907

REACTIONS (6)
  - BLOOD POTASSIUM DECREASED [None]
  - GLYCOSURIA [None]
  - MICROALBUMINURIA [None]
  - RENAL TUBULAR DISORDER [None]
  - URINE POTASSIUM INCREASED [None]
  - URINE SODIUM INCREASED [None]
